FAERS Safety Report 8783675 (Version 1)
Quarter: 2012Q4

REPORT INFORMATION
  Report Type: Report from Study
  Country: US (occurrence: US)
  Receive Date: 20120913
  Receipt Date: 20120913
  Transmission Date: 20130627
  Serious: No
  Sender: FDA-Public Use
  Company Number: US-VERTEX PHARMACEUTICAL INC.-AE-2012-009048

PATIENT
  Age: 62 Year
  Sex: Male
  Weight: 95.91 kg

DRUGS (9)
  1. INCIVEK [Suspect]
     Indication: HEPATITIS C
     Route: 048
     Dates: start: 20120322, end: 20120616
  2. PEGASYS [Concomitant]
     Indication: HEPATITIS C
  3. RIBATAB [Concomitant]
     Indication: HEPATITIS C
  4. ATARAX [Concomitant]
  5. NORVASC [Concomitant]
  6. ATENOLOL [Concomitant]
  7. WELLBUTRIN [Concomitant]
  8. PROAIR HFA AER [Concomitant]
  9. FLOVENT AER [Concomitant]

REACTIONS (10)
  - Penile pain [Unknown]
  - Oral pain [Unknown]
  - Decreased appetite [Unknown]
  - Weight decreased [Unknown]
  - Fatigue [Unknown]
  - Anaemia [Unknown]
  - Rash [Not Recovered/Not Resolved]
  - Proctalgia [Unknown]
  - Pruritus [Not Recovered/Not Resolved]
  - Dysgeusia [Unknown]
